FAERS Safety Report 7085602-9 (Version None)
Quarter: 2010Q4

REPORT INFORMATION
  Report Type: 
  Country: None (occurrence: None)
  Receive Date: 20101105
  Receipt Date: 20101026
  Transmission Date: 20110411
  Serious: Yes (Death, Life-Threatening, Other)
  Sender: FDA-Public Use
  Company Number: US-PFIZER INC-2010140115

PATIENT
  Sex: Male
  Weight: 73.02 kg

DRUGS (6)
  1. MORPHINE SULFATE [Suspect]
     Dosage: UNK
  2. ALPRAZOLAM [Suspect]
     Dosage: UNK
  3. OXYCONTIN [Suspect]
     Dosage: UNK
  4. ETHANOL [Suspect]
     Dosage: UNK
  5. ACETAMINOPHEN [Suspect]
     Dosage: UNK
  6. PROPOXYPHENE HYDROCHLORIDE [Suspect]
     Dosage: UNK

REACTIONS (6)
  - CARDIAC DISORDER [None]
  - DRUG DEPENDENCE [None]
  - HEPATIC CIRRHOSIS [None]
  - MULTIPLE DRUG OVERDOSE ACCIDENTAL [None]
  - RESPIRATORY ARREST [None]
  - SUBSTANCE ABUSE [None]
